FAERS Safety Report 6509338-5 (Version None)
Quarter: 2009Q4

REPORT INFORMATION
  Report Type: 
  Country: None (occurrence: None)
  Receive Date: 20091218
  Receipt Date: 20091218
  Transmission Date: 20100525
  Serious: Yes (Disabling)
  Sender: FDA-Public Use
  Company Number: None

PATIENT
  Age: 53 Year
  Sex: Female
  Weight: 129.2752 kg

DRUGS (1)
  1. TRAZODONE HCL [Suspect]
     Indication: AMINO ACID METABOLISM DISORDER
     Dosage: 1 DAILY PO
     Route: 048
     Dates: start: 20091212, end: 20091216

REACTIONS (3)
  - DRUG INEFFECTIVE [None]
  - OVERDOSE [None]
  - PRODUCT QUALITY ISSUE [None]
